FAERS Safety Report 14730178 (Version 2)
Quarter: 2020Q2

REPORT INFORMATION
  Report Type: Spontaneous
  Country: AU (occurrence: AU)
  Receive Date: 20180406
  Receipt Date: 20200429
  Transmission Date: 20200713
  Serious: Yes (Hospitalization)
  Sender: FDA-Public Use
  Company Number: AU-BRISTOL-MYERS SQUIBB COMPANY-BMS-2017-102810

PATIENT
  Age: 87 Year
  Sex: Male

DRUGS (1)
  1. APIXABAN [Suspect]
     Active Substance: APIXABAN
     Indication: AORTIC VALVE REPLACEMENT
     Dosage: 5 MG, BID
     Route: 048

REACTIONS (2)
  - Vascular pseudoaneurysm [Recovered/Resolved]
  - Intentional product use issue [Unknown]

NARRATIVE: CASE EVENT DATE: 201604
